FAERS Safety Report 6566148-0 (Version None)
Quarter: 2010Q1

REPORT INFORMATION
  Report Type: 
  Country: None (occurrence: None)
  Receive Date: 20100202
  Receipt Date: 20100126
  Transmission Date: 20100710
  Serious: Yes (Other)
  Sender: FDA-Public Use
  Company Number: US-JNJFOC-20090903315

PATIENT
  Sex: Female
  Weight: 65.32 kg

DRUGS (3)
  1. LEVAQUIN [Suspect]
     Indication: UPPER RESPIRATORY TRACT INFECTION
     Dosage: FOR FIVE DAYS
     Route: 048
     Dates: start: 20090610
  2. LEVAQUIN [Suspect]
     Indication: COUGH
     Dosage: FOR FIVE DAYS
     Route: 048
     Dates: start: 20090610
  3. LEVAQUIN [Suspect]
     Indication: INFLUENZA
     Dosage: FOR FIVE DAYS
     Route: 048
     Dates: start: 20090610

REACTIONS (14)
  - ALOPECIA [None]
  - ANXIETY [None]
  - CRYING [None]
  - FEELING JITTERY [None]
  - INCREASED TENDENCY TO BRUISE [None]
  - MUSCLE CONTRACTIONS INVOLUNTARY [None]
  - MUSCLE SPASMS [None]
  - MUSCLE TWITCHING [None]
  - NEUROPATHY PERIPHERAL [None]
  - PAIN IN EXTREMITY [None]
  - PARAESTHESIA [None]
  - RESTLESS LEGS SYNDROME [None]
  - SENSORY LOSS [None]
  - TREMOR [None]
